FAERS Safety Report 7536254-2 (Version None)
Quarter: 2011Q2

REPORT INFORMATION
  Report Type: 
  Country: None (occurrence: None)
  Receive Date: 20110602
  Receipt Date: 20110518
  Transmission Date: 20111010
  Serious: Yes (Death, Hospitalization, Other)
  Sender: FDA-Public Use
  Company Number: US-2011-10325

PATIENT
  Age: 58 Year
  Sex: Male

DRUGS (4)
  1. METHOTREXATE [Concomitant]
  2. CYCLOPHOSPHAMIDE [Concomitant]
  3. CYCLOSPORINE [Concomitant]
  4. BUSULFEX [Suspect]
     Indication: STEM CELL TRANSPLANT
     Dosage: INTRAVENOUS
     Route: 042

REACTIONS (7)
  - SYSTEMIC CANDIDA [None]
  - NO THERAPEUTIC RESPONSE [None]
  - HISTIOCYTOSIS HAEMATOPHAGIC [None]
  - VENOOCCLUSIVE LIVER DISEASE [None]
  - THROMBOTIC MICROANGIOPATHY [None]
  - HEPATIC FAILURE [None]
  - CYTOMEGALOVIRUS INFECTION [None]
